FAERS Safety Report 7906046-0 (Version None)
Quarter: 2011Q4

REPORT INFORMATION
  Report Type: 
  Country: None (occurrence: None)
  Receive Date: 20111110
  Receipt Date: 20111110
  Transmission Date: 20120403
  Serious: Yes (Hospitalization, Other)
  Sender: FDA-Public Use
  Company Number: None

PATIENT
  Age: 59 Year
  Sex: Female
  Weight: 104.32 kg

DRUGS (1)
  1. LEVOXYL [Suspect]
     Indication: BASEDOW'S DISEASE
     Dosage: 0.175 MG
     Route: 048
     Dates: start: 20110703, end: 20111109

REACTIONS (3)
  - OVERDOSE [None]
  - HYPERTHYROIDISM [None]
  - ARRHYTHMIA [None]
